FAERS Safety Report 9606662 (Version 2)
Quarter: 2013Q4

REPORT INFORMATION
  Report Type: Spontaneous
  Country: US (occurrence: US)
  Receive Date: 20131008
  Receipt Date: 20131008
  Transmission Date: 20140711
  Serious: No
  Sender: FDA-Public Use
  Company Number: US-AMGEN-USASP2013045766

PATIENT
  Age: 73 Year
  Sex: Female
  Weight: 47.62 kg

DRUGS (7)
  1. PROLIA [Suspect]
     Indication: OSTEOPOROSIS POSTMENOPAUSAL
     Dosage: 60 MG, Q6MO
     Route: 058
     Dates: start: 20130624
  2. SEROQUEL [Concomitant]
     Indication: INSOMNIA
     Dosage: 50 MG, QD
     Route: 048
  3. LORTAB                             /00607101/ [Concomitant]
  4. KLONOPIN [Concomitant]
  5. NITROSTAT [Concomitant]
     Indication: CHEST PAIN
     Dosage: 0.4, AS NECESSARY
     Route: 058
  6. HYDROCODONE [Concomitant]
     Indication: PAIN
     Dosage: 10/500
     Route: 048
  7. MOBIC [Concomitant]
     Indication: PAIN
     Dosage: 7.5, QD
     Route: 048

REACTIONS (5)
  - Nausea [Recovered/Resolved]
  - Diarrhoea [Recovered/Resolved]
  - Oedema mouth [Recovered/Resolved]
  - Malaise [Unknown]
  - Pain [Not Recovered/Not Resolved]
